FAERS Safety Report 22635235 (Version 5)
Quarter: 2024Q2

REPORT INFORMATION
  Report Type: Spontaneous
  Country: US (occurrence: US)
  Receive Date: 20230623
  Receipt Date: 20240430
  Transmission Date: 20240716
  Serious: Yes (Other)
  Sender: FDA-Public Use
  Company Number: US-PFIZER INC-PV202300104259

PATIENT
  Age: 82 Year
  Sex: Male
  Weight: 93.424 kg

DRUGS (30)
  1. MEKTOVI [Suspect]
     Active Substance: BINIMETINIB
     Indication: Metastatic malignant melanoma
     Dosage: 15 MG, 2X/DAY
     Route: 048
     Dates: start: 2022, end: 20240205
  2. MEKTOVI [Suspect]
     Active Substance: BINIMETINIB
     Dosage: 15 MG, 2X/DAY
     Route: 048
  3. BRAFTOVI [Suspect]
     Active Substance: ENCORAFENIB
     Indication: Metastatic malignant melanoma
     Dosage: UNK (TAKING TWICE THE DOSE)
     Dates: start: 2022
  4. BRAFTOVI [Suspect]
     Active Substance: ENCORAFENIB
     Indication: Skin neoplasm excision
     Dosage: 225 MG (3 CAPS 75 MG), DAILY
     Dates: end: 20240205
  5. BRAFTOVI [Suspect]
     Active Substance: ENCORAFENIB
     Dosage: 75 MG 3 CAPSULES 2 AM  1 PM
  6. ACETAMINOPHEN [Concomitant]
     Active Substance: ACETAMINOPHEN
     Dosage: TAKE 1 TABLET (500 MG TOTAL) EVERY 6 HOURS AS NEEDED.
     Route: 048
  7. ASCORBIC ACID [Concomitant]
     Active Substance: ASCORBIC ACID
     Dosage: TAKE 1 TABLET (1,000 MG TOTAL) DAILY
     Route: 048
  8. ATORVASTATIN [Concomitant]
     Active Substance: ATORVASTATIN
     Dosage: TAKE 0.5 TABLETS (5 MG TOTAL) DAILY. 1/2
     Route: 048
  9. BETAMETHASONE DIPROPIONATE [Concomitant]
     Active Substance: BETAMETHASONE DIPROPIONATE
     Indication: Dermatitis contact
     Dosage: UNK, 2X/DAY
     Route: 061
  10. CALCIUM CARBONATE [Concomitant]
     Active Substance: CALCIUM CARBONATE
     Dosage: TAKE 1 TABLET (500 MG TOTAL) 2 TIMES DAILY
     Route: 048
  11. CARVEDILOL [Concomitant]
     Active Substance: CARVEDILOL
     Dosage: 1 TABLET (3.125 MG TOTAL) 2 TIMES DAILY
     Route: 048
  12. CEPHALEXIN [Concomitant]
     Active Substance: CEPHALEXIN
     Dosage: 1 CAPSULE (500 MG TOTAL)
  13. CHOLECALCIFEROL [Concomitant]
     Active Substance: CHOLECALCIFEROL
     Dosage: 25 MG, DAILY
     Route: 048
  14. CYANOCOBALAMIN [Concomitant]
     Active Substance: CYANOCOBALAMIN
     Dosage: TAKE 1 TABLET (250 MCG TOTAL) DAILY
     Route: 048
  15. DENOSUMAB [Concomitant]
     Active Substance: DENOSUMAB
     Dosage: 120 MG/L.7 ML INJECTION, EVERY MONTH
  16. DESOXIMETASONE [Concomitant]
     Active Substance: DESOXIMETASONE
     Dosage: APPLY 1 APPLICATION TOPICALLY 2 TIMES DAILY
     Route: 061
  17. DIPHENHYDRAMINE [Concomitant]
     Active Substance: DIPHENHYDRAMINE
     Indication: Contrast media allergy
     Dosage: TAKE 1 TAB (50MG) BY MOUTH 1 HOUR PRIOR TO CT
     Route: 048
  18. FINASTERIDE [Concomitant]
     Active Substance: FINASTERIDE
     Indication: Lower urinary tract symptoms
     Dosage: TAKE 1 TABLET (5 MG TOTAL) DAILY
     Route: 048
  19. GABAPENTIN [Concomitant]
     Active Substance: GABAPENTIN
     Dosage: TAKE 1 CAPSULE (400 MG TOTAL) 5 TIMES DAILY
     Route: 048
  20. CHONDROITIN SULFATE (BOVINE)\GLUCOSAMINE SULFATE [Concomitant]
     Active Substance: CHONDROITIN SULFATE (BOVINE)\GLUCOSAMINE SULFATE
     Dosage: TAKE 1 TABLET BY MOUTH 2 TIMES DAILY.
     Route: 048
  21. HYDROCORTISONE [Concomitant]
     Active Substance: HYDROCORTISONE
     Indication: Dermatitis contact
     Dosage: UNK, 2X/DAY
     Route: 061
  22. KETOCONAZOLE [Concomitant]
     Active Substance: KETOCONAZOLE
     Indication: Seborrhoeic dermatitis
     Dosage: APPLY TOPICALLY 2 TIMES DAILY. DAY SUPPLY: 30
     Route: 061
  23. LORATADINE [Concomitant]
     Active Substance: LORATADINE
     Dosage: 1 TABLET ORALLY ONCE A DAY
     Route: 048
  24. PEPTO-BISMOL [Concomitant]
     Active Substance: BISMUTH SUBSALICYLATE
     Route: 048
  25. PREDNISONE [Concomitant]
     Active Substance: PREDNISONE
     Indication: Contrast media allergy
     Dosage: TAKE 1 TAB (50MG) BY MOUTH 13 HOURS, 7 HOURS AND I HOUR PRIOR TO CT
     Route: 048
  26. RIVAROXABAN [Concomitant]
     Active Substance: RIVAROXABAN
     Dosage: TAKE 1 TABLET (20 MG TOTAL) BY MOUTH DAILY.
     Route: 048
  27. SALMON OIL 1000 [Concomitant]
     Dosage: 500 MG, 2X/DAY
     Route: 048
  28. SYSTANE COMPLETE [Concomitant]
     Active Substance: PROPYLENE GLYCOL
     Route: 047
  29. TAMSULOSIN [Concomitant]
     Active Substance: TAMSULOSIN
     Indication: Lower urinary tract symptoms
     Dosage: TAKE 1 CAPSULE (0.4 MG TOTAL) BY MOUTH DAILY.
     Route: 048
  30. TRIAMCINOLONE [Concomitant]
     Active Substance: TRIAMCINOLONE
     Dosage: APPLY 1 APPLICATION TOPICALLY 2 TIMES WEEKLY.
     Route: 061

REACTIONS (1)
  - Ejection fraction decreased [Not Recovered/Not Resolved]
